FAERS Safety Report 13403412 (Version 1)
Quarter: 2017Q2

REPORT INFORMATION
  Report Type: Spontaneous
  Country: US (occurrence: US)
  Receive Date: 20170404
  Receipt Date: 20170404
  Transmission Date: 20170830
  Serious: Yes (Hospitalization, Disabling, Other)
  Sender: FDA-Public Use
  Company Number: None

PATIENT
  Age: 27 Year
  Sex: Male
  Weight: 83.25 kg

DRUGS (2)
  1. CIPROFOXACIN [Suspect]
     Active Substance: CIPROFLOXACIN
     Indication: MUSCLE STRAIN
     Dosage: ?          QUANTITY:1 TABLET(S);?
     Route: 048
     Dates: start: 20161014, end: 20161024
  2. LUNESTA [Concomitant]
     Active Substance: ESZOPICLONE

REACTIONS (4)
  - Tendon pain [None]
  - Gait disturbance [None]
  - Myalgia [None]
  - Loss of personal independence in daily activities [None]

NARRATIVE: CASE EVENT DATE: 20161127
